FAERS Safety Report 22588866 (Version 1)
Quarter: 2023Q2

REPORT INFORMATION
  Report Type: Spontaneous
  Country: ES (occurrence: ES)
  Receive Date: 20230612
  Receipt Date: 20230612
  Transmission Date: 20230722
  Serious: Yes (Other)
  Sender: FDA-Public Use
  Company Number: ES-AMGEN-ESPSP2023096980

PATIENT

DRUGS (3)
  1. ROMIPLOSTIM [Suspect]
     Active Substance: ROMIPLOSTIM
     Indication: Immune thrombocytopenia
     Route: 065
  2. ELTROMBOPAG [Concomitant]
     Active Substance: ELTROMBOPAG
     Indication: Immune thrombocytopenia
     Route: 065
  3. HUMAN IMMUNOGLOBULIN G [Concomitant]
     Active Substance: HUMAN IMMUNOGLOBULIN G
     Indication: Immune thrombocytopenia
     Route: 065

REACTIONS (8)
  - Hepatotoxicity [Unknown]
  - Cytopenia [Unknown]
  - Therapy non-responder [Unknown]
  - General physical health deterioration [Unknown]
  - Cholelithiasis [Unknown]
  - Cough [Unknown]
  - Paraesthesia [Unknown]
  - Headache [Unknown]
